FAERS Safety Report 24906440 (Version 3)
Quarter: 2025Q1

REPORT INFORMATION
  Report Type: Spontaneous
  Country: US (occurrence: US)
  Receive Date: 20250130
  Receipt Date: 20250313
  Transmission Date: 20250409
  Serious: No
  Sender: PFIZER
  Company Number: US-PFIZER INC-202500013292

PATIENT
  Age: 31 Year
  Sex: Female

DRUGS (1)
  1. GENOTROPIN [Suspect]
     Active Substance: SOMATROPIN
     Indication: Hypopituitarism
     Dosage: 0.7 MG/DAY 5 DAYS/WEEK

REACTIONS (2)
  - Device power source issue [Unknown]
  - Expired device used [Unknown]
